FAERS Safety Report 9404885 (Version 4)
Quarter: 2013Q3

REPORT INFORMATION
  Report Type: Report from Study
  Country: US (occurrence: US)
  Receive Date: 20130717
  Receipt Date: 20130819
  Transmission Date: 20140515
  Serious: Yes (Death, Hospitalization, Other)
  Sender: FDA-Public Use
  Company Number: US-GENZYME-CLOF-1002716

PATIENT
  Age: 18 Year
  Sex: Male
  Weight: 62.8 kg

DRUGS (43)
  1. CLOLAR [Suspect]
     Indication: LYMPHOCYTIC LEUKAEMIA
     Dosage: CONSOLIDATION PART 2: OVER 2 HOURS 30 MG/M2, QD DAYS 29-33
     Route: 042
     Dates: start: 20120720, end: 20120724
  2. VINCRISTINE [Suspect]
     Indication: LYMPHOCYTIC LEUKAEMIA
     Dosage: INDUCTION: IV PUSH OVER 1 MIN 1.5 MG/M2, QD DAYS 1, 8, 15 AND 22
     Route: 042
     Dates: start: 20120430, end: 20120521
  3. VINCRISTINE [Suspect]
     Dosage: CONSOLIDATION PART 1: IV PUSH OVER 1 MIN 1.5 MG/M2, QD DAYS 15 AND 22
     Route: 042
     Dates: start: 20120620, end: 20120620
  4. VINCRISTINE [Suspect]
     Dosage: CONSOLIDATION PART 2: IV PUSH OVER 1 MIN 1.5 MG/M2, QD DAYS 43 AND 50
     Route: 042
     Dates: start: 20120803, end: 20120803
  5. VINCRISTINE [Suspect]
     Dosage: UNK (BRIDGE THERAPY)
     Route: 065
     Dates: start: 20121003, end: 20121023
  6. VINCRISTINE [Suspect]
     Dosage: INTERIM MAINTENANCE 1: IV PUSH OVER 1 MIN 1.5 MG/M2, QD DAYS 1, 15, 29, 43
     Route: 042
     Dates: start: 20121116, end: 20130122
  7. VINCRISTINE [Suspect]
     Dosage: DELAYED INTENSIFICATION PART 1: IV PUSH OVER 1 MIN 1.5 MG/M2, QD DAYS 1, 8, 15
     Route: 042
     Dates: start: 20130214, end: 20130227
  8. VINCRISTINE [Suspect]
     Dosage: DELAYED INTENSIFICATION PART 2: IV PUSH OVER 1 MIN 1.5 MG/M2, QD DAYS 43, 50
     Route: 042
     Dates: start: 20130409, end: 20130416
  9. VINCRISTINE [Suspect]
     Dosage: MAINTENANCE: IV PUSH OVER 1MIN 1.5 MG/M2, QD DAYS 1, 29 AND 57
     Route: 042
     Dates: start: 20130529, end: 20130620
  10. MERCAPTOPURINE [Suspect]
     Indication: LYMPHOCYTIC LEUKAEMIA
     Dosage: CONSOLIDATION PART 1: 60 MG/M2, QD DAYS 1-14
     Route: 048
     Dates: start: 20120608, end: 20120620
  11. MERCAPTOPURINE [Suspect]
     Dosage: INTERIM MAINTENANCE 1: 25 MG/M2, QD DAYS 1-56
     Route: 048
     Dates: start: 20121121, end: 20121128
  12. MERCAPTOPURINE [Suspect]
     Dosage: MAINTENANCE: 75 MG/M2/DOSE/DAY, DAYS 1-84
     Route: 048
     Dates: start: 20130529, end: 20130529
  13. METHOTREXATE [Suspect]
     Indication: LYMPHOCYTIC LEUKAEMIA
     Dosage: INDUCTION: 15 MG, QD, DAY 8 AND 29
     Route: 037
     Dates: start: 20120530, end: 20120530
  14. METHOTREXATE [Suspect]
     Dosage: CONSOLIDATION PART 1: 15 MG, QD, DAYS 1, 8, 15 AND 22
     Route: 037
     Dates: start: 20120607, end: 20120627
  15. METHOTREXATE [Suspect]
     Dosage: UNK (BRIDGE THERAPY)
     Route: 065
     Dates: start: 20121003, end: 20121003
  16. METHOTREXATE [Suspect]
     Dosage: INTERIM MAINTENANCE 1: HIGH DOSE OVER 24 HOURS 5000 MG/M2, QD DAY 1, 15, 29, 43
     Route: 042
     Dates: start: 20121112, end: 20130122
  17. METHOTREXATE [Suspect]
     Dosage: INTERIM MAINTENANCE 1: 15 MG, QD DAYS 1 AND 29
     Route: 037
     Dates: start: 20121112, end: 20130122
  18. METHOTREXATE [Suspect]
     Dosage: DELAYED INTENSIFICATION PART 1: 15 MG, QD, DAY 1
     Route: 037
     Dates: start: 20130214, end: 20130214
  19. METHOTREXATE [Suspect]
     Dosage: DELAYED INTENSIFICATION PART 2: 15 MG, QD DAYS 29, 36
     Route: 037
     Dates: start: 20130327, end: 20130327
  20. METHOTREXATE [Suspect]
     Dosage: MAINTENANCE: 15 MG, QD
     Route: 037
     Dates: start: 20130529, end: 20130529
  21. METHOTREXATE [Suspect]
     Dosage: MAINTENANCE: 20 MG/M2/DOSE/WEEK, QD DAYS 8, 15, 22, 29, 36, 43, 50, 57, 64, 71 AND 78
     Route: 048
     Dates: start: 20130531, end: 20130531
  22. CYCLOPHOSPHAMIDE [Suspect]
     Indication: LYMPHOCYTIC LEUKAEMIA
     Dosage: CONSOLIDATION PART 1: OVER 30-60 MIN 1000 MG/M2, QD, DAY 1
     Route: 042
     Dates: start: 20120607, end: 20120607
  23. CYCLOPHOSPHAMIDE [Suspect]
     Dosage: CONSOLIDATION PART 2: OVER 15-30 MIN 440 MG/M2, QD, DAYS 29-33
     Route: 042
     Dates: start: 20120720, end: 20120724
  24. CYCLOPHOSPHAMIDE [Suspect]
     Dosage: DELAYED INTENSIFICATION PART 2: OVER 30-60 MIN 1000 MG/M2, QD, DAY 29
     Route: 042
     Dates: start: 20130327, end: 20130327
  25. CYTARABINE [Suspect]
     Indication: LYMPHOCYTIC LEUKAEMIA
     Dosage: INDUCTION: } 3 YRS 70 MG, QD
     Route: 037
     Dates: start: 20120430, end: 20120430
  26. CYTARABINE [Suspect]
     Dosage: CONSOLIDATION PART I: OVER 15-30 MIN 75 MG/M2, QD (DAY 1-4 AND 8-11)
     Route: 065
     Dates: start: 20120607, end: 20120608
  27. CYTARABINE [Suspect]
     Dosage: DELAYED INTENSIFICATION PART 2: 75 MG/M2, QD DAYS 29-32, 36-39
     Route: 042
     Dates: start: 20130327, end: 20130402
  28. PEGASPARGASE [Suspect]
     Indication: LYMPHOCYTIC LEUKAEMIA
     Dosage: INDUCTION: OVER 1-15 MIN 30 MG/M2, QD DAY 4
     Route: 042
     Dates: start: 20120503, end: 20120503
  29. PEGASPARGASE [Suspect]
     Dosage: CONSOLIDATION PART 1: OVER 1-2 HRS 2500 IU/M2, QD, DAY 15
     Route: 042
     Dates: start: 20120620, end: 20120620
  30. PEGASPARGASE [Suspect]
     Dosage: CONSOLIDATION PART 2: OVER 1-2 HRS 2500 IU/M2, QD DAY 43
     Route: 042
     Dates: start: 20120803, end: 20120803
  31. PEGASPARGASE [Suspect]
     Dosage: UNK (BRIDGE THERAPY)
     Route: 065
     Dates: start: 20121010, end: 20121010
  32. PEGASPARGASE [Suspect]
     Dosage: DELAYED INTENSIFICATION PART 1: OVER 1- 2HRS 2500 IU/M2, QD
     Route: 042
     Dates: start: 20130218, end: 20130218
  33. PEGASPARGASE [Suspect]
     Dosage: DELAYED INTENSIFICATION PART 2: OVER 1-2 HRS 2500 IU/M2, QD
     Route: 042
     Dates: start: 20130409, end: 20130416
  34. ETOPOSIDE [Suspect]
     Indication: LYMPHOCYTIC LEUKAEMIA
     Dosage: CONSOLIDATION PART 2: OVER 60-120 MIN 100 MG/M2, QD, DAYS 29-33
     Route: 042
     Dates: start: 20120720, end: 20120724
  35. LEUCOVORIN [Suspect]
     Indication: LYMPHOCYTIC LEUKAEMIA
     Dosage: INTERIM MAINTENANCE 1: PO/IV 15 MG/M2, QD, DAYS 3-4, 17-18, 31-32, 45-46
     Route: 065
     Dates: start: 20121116, end: 20130124
  36. DOXORUBICIN [Suspect]
     Indication: LYMPHOCYTIC LEUKAEMIA
     Dosage: DELAYED INTENSIFICATION PART 1: OVER 25 MG/M2, QD DAYS 1, 8, 15 1-15 MIN
     Route: 042
     Dates: start: 20130214, end: 20130227
  37. THIOGUANINE [Suspect]
     Indication: LYMPHOCYTIC LEUKAEMIA
     Dosage: DELAYED INTENSIFICATION PART 2: 60 MG/M2, QD DAYS 29-42
     Route: 048
     Dates: start: 20130305, end: 20130319
  38. PREDNISONE [Suspect]
     Indication: LYMPHOCYTIC LEUKAEMIA
     Dosage: INDUCTION: 30 MG/M2, QD DAYS 1-28
     Route: 048
     Dates: start: 20120430, end: 20120601
  39. PREDNISONE [Suspect]
     Dosage: MAINTENANCE: 20 MG/M2/DOSE, BID DAYS 1-5, 29-33 AND 57-61
     Route: 048
  40. PREDNISONE [Suspect]
     Dosage: UNK (BRIDGE THERAPY)
     Route: 065
     Dates: start: 20121003, end: 20121023
  41. DEXAMETHASONE [Suspect]
     Indication: LYMPHOCYTIC LEUKAEMIA
     Dosage: INDUCTION: 5 MG/M2, QD, DAYS 1-14
     Route: 048
  42. DEXAMETHASONE [Suspect]
     Dosage: DELAYED INTENSIFICATION PART 1: 5 MG/M2, QD, DAYS 1-7, 15-21
     Route: 065
  43. DAUNORUBICIN [Suspect]
     Indication: LYMPHOCYTIC LEUKAEMIA
     Dosage: INDUCTION: IV PUSH OVER 1-15 MIN25 MG/M2, QD DAYS 1, 8, 15 ,22
     Route: 042

REACTIONS (9)
  - Bone marrow failure [Fatal]
  - Shock [Unknown]
  - Acute respiratory distress syndrome [Fatal]
  - Respiratory tract infection fungal [Fatal]
  - Lower respiratory tract infection viral [Fatal]
  - Traumatic lung injury [Fatal]
  - Pneumothorax [Fatal]
  - Pneumothorax [Fatal]
  - Renal impairment [Recovered/Resolved]
